FAERS Safety Report 24680624 (Version 1)
Quarter: 2024Q4

REPORT INFORMATION
  Report Type: Spontaneous
  Country: US (occurrence: US)
  Receive Date: 20241129
  Receipt Date: 20241129
  Transmission Date: 20250114
  Serious: Yes (Life-Threatening, Other)
  Sender: BRACCO
  Company Number: US-BRACCO-2024US03585

PATIENT
  Age: 55 Year
  Sex: Male

DRUGS (3)
  1. LUMASON [Suspect]
     Active Substance: SULFUR HEXAFLUORIDE
     Route: 042
  2. LUMASON [Suspect]
     Active Substance: SULFUR HEXAFLUORIDE
     Route: 042
  3. LUMASON [Suspect]
     Active Substance: SULFUR HEXAFLUORIDE
     Route: 042

REACTIONS (1)
  - Anaphylactic shock [Recovered/Resolved]
